FAERS Safety Report 4850961-1 (Version None)
Quarter: 2005Q4

REPORT INFORMATION
  Report Type: 
  Country: None (occurrence: None)
  Receive Date: 20051209
  Receipt Date: 20051209
  Transmission Date: 20060501
  Serious: Yes (Other)
  Sender: FDA-Public Use
  Company Number: None

PATIENT
  Sex: Male
  Weight: 96 kg

DRUGS (2)
  1. CLONIDINE [Suspect]
     Indication: DRUG DEPENDENCE
     Dosage: 0.1MG TID
     Dates: start: 20041004, end: 20050404
  2. CLONIDINE [Suspect]
     Indication: DRUG WITHDRAWAL SYNDROME
     Dosage: 0.1MG TID
     Dates: start: 20041004, end: 20050404

REACTIONS (3)
  - BRADYCARDIA [None]
  - HEART RATE INCREASED [None]
  - PAIN [None]
